FAERS Safety Report 6256144-5 (Version None)
Quarter: 2009Q3

REPORT INFORMATION
  Report Type: 
  Country: None (occurrence: None)
  Receive Date: 20090706
  Receipt Date: 20090623
  Transmission Date: 20100115
  Serious: Yes (Hospitalization, Other)
  Sender: FDA-Public Use
  Company Number: PHHY2009BR25562

PATIENT
  Age: 48 Year
  Sex: Female
  Weight: 64 kg

DRUGS (4)
  1. FORASEQ [Suspect]
     Indication: CHRONIC OBSTRUCTIVE PULMONARY DISEASE
     Dosage: 1 INHALATION WITH EVERY ACTIVE INGREDIENT 02 TIMES PER DAY
     Dates: start: 20030101
  2. SIMVASTATIN [Concomitant]
     Indication: BLOOD CHOLESTEROL ABNORMAL
     Dosage: 40 MG, QD
     Route: 048
  3. FUROSEMIDE [Concomitant]
     Indication: DIURETIC THERAPY
     Dosage: 25 MG, QD
     Route: 048
  4. OMEPRAZOLE [Concomitant]
     Indication: REFLUX GASTRITIS
     Dosage: 25 MG, QD
     Route: 048

REACTIONS (5)
  - BLOOD PRESSURE INCREASED [None]
  - CHOLECYSTECTOMY [None]
  - DYSPNOEA [None]
  - INFARCTION [None]
  - LUNG DISORDER [None]
